FAERS Safety Report 7306754-9 (Version None)
Quarter: 2011Q1

REPORT INFORMATION
  Report Type: 
  Country: None (occurrence: None)
  Receive Date: 20110222
  Receipt Date: 20110214
  Transmission Date: 20110831
  Serious: Yes (Hospitalization, Other)
  Sender: FDA-Public Use
  Company Number: FR-ELI_LILLY_AND_COMPANY-FR201006001946

PATIENT
  Age: 76 Year
  Sex: Female
  Weight: 60 kg

DRUGS (5)
  1. FORTEO [Suspect]
     Indication: OSTEOPOROSIS
     Dosage: 20 UG, UNKNOWN
     Route: 058
     Dates: start: 20091218
  2. ISOPTIN [Concomitant]
     Indication: HYPERTENSION
     Dosage: 120 MG, DAILY (1/D)
     Route: 048
  3. CALCIPRAT [Concomitant]
     Indication: OSTEOPOROSIS
     Dosage: 100 MG, DAILY (1/D)
     Route: 048
  4. SPIRONOLACTONE [Concomitant]
     Indication: HYPERTENSION
     Dosage: 75 MG, DAILY (1/D)
     Route: 048
  5. UVEDOSE [Concomitant]
     Indication: OSTEOPOROSIS
     Dosage: 1 D/F, MONTHLY (1/M)
     Route: 048

REACTIONS (2)
  - OSTEOARTHRITIS [None]
  - DIZZINESS [None]
